FAERS Safety Report 25713752 (Version 1)
Quarter: 2025Q3

REPORT INFORMATION
  Report Type: Spontaneous
  Country: EU (occurrence: EU)
  Receive Date: 20250822
  Receipt Date: 20250822
  Transmission Date: 20251020
  Serious: Yes (Hospitalization)
  Sender: NORDIC PHARMA
  Company Number: None

PATIENT
  Age: 80 Year
  Sex: Female
  Weight: 45 kg

DRUGS (7)
  1. METHOTREXATE SODIUM [Suspect]
     Active Substance: METHOTREXATE SODIUM
     Indication: Rheumatoid arthritis
     Route: 048
     Dates: start: 20220302, end: 20241206
  2. FOLIC ACID [Concomitant]
     Active Substance: FOLIC ACID
     Indication: Vitamin supplementation
     Route: 048
  3. CORDARONE [Concomitant]
     Active Substance: AMIODARONE HYDROCHLORIDE
     Indication: Ventricular extrasystoles
     Route: 048
  4. LIPTRUZET [Concomitant]
     Active Substance: ATORVASTATIN CALCIUM\EZETIMIBE
     Indication: Hypercholesterolaemia
     Route: 048
  5. BISOPROLOL FUMARATE [Concomitant]
     Active Substance: BISOPROLOL FUMARATE
     Indication: Cardiac failure chronic
     Route: 048
  6. ZYMAD 50 000 UI, solution buvable en ampoule [Concomitant]
     Indication: Vitamin supplementation
     Route: 048
  7. OLUMIANT 2 mg, comprim? pellicul? [Concomitant]
     Indication: Rheumatoid arthritis
     Route: 048
     Dates: start: 20220302, end: 20241206

REACTIONS (3)
  - Cytomegalovirus infection reactivation [Recovered/Resolved]
  - Uveitis [Recovering/Resolving]
  - Cytomegalovirus chorioretinitis [Recovering/Resolving]

NARRATIVE: CASE EVENT DATE: 20241214
